FAERS Safety Report 8885204 (Version 1)
Quarter: 2012Q4

REPORT INFORMATION
  Report Type: 
  Country: BR (occurrence: BR)
  Receive Date: 20121105
  Receipt Date: 20121105
  Transmission Date: 20130627
  Serious: Yes (Other)
  Sender: FDA-Public Use
  Company Number: BR-AMGEN-BRACT2012001125

PATIENT
  Age: 74 Year
  Sex: Male
  Weight: 77 kg

DRUGS (5)
  1. ETANERCEPT [Suspect]
     Indication: RHEUMATOID ARTHRITIS
     Dosage: 50 mg, qwk
     Route: 058
     Dates: start: 20101216
  2. ARADOIS [Concomitant]
     Indication: HYPERTENSION
     Dosage: UNK
  3. SIMVASTATIN [Concomitant]
     Dosage: UNK
  4. MANIDIPINE [Concomitant]
     Dosage: UNK
  5. VERTIX [Concomitant]
     Indication: LABYRINTHITIS
     Dosage: UNK
     Route: 058

REACTIONS (3)
  - Neoplasm malignant [Not Recovered/Not Resolved]
  - Injection site pain [Unknown]
  - Injection site induration [Unknown]
